FAERS Safety Report 7176638-8 (Version None)
Quarter: 2010Q4

REPORT INFORMATION
  Report Type: 
  Country: None (occurrence: None)
  Receive Date: 20101220
  Receipt Date: 20101213
  Transmission Date: 20110411
  Serious: Yes (Death, Life-Threatening)
  Sender: FDA-Public Use
  Company Number: DE-JNJFOC-20100601934

PATIENT
  Age: 64 Year
  Sex: Female

DRUGS (3)
  1. HALOPERIDOL [Suspect]
     Indication: PROPHYLAXIS
     Route: 048
  2. EUNERPAN [Suspect]
     Indication: PROPHYLAXIS
     Route: 048
  3. VITAMIN B1 TAB [Concomitant]
     Route: 030

REACTIONS (12)
  - ACUTE HEPATIC FAILURE [None]
  - CARDIAC FAILURE [None]
  - CHOLELITHIASIS [None]
  - GOITRE [None]
  - HEPATIC CIRRHOSIS [None]
  - HEPATIC STEATOSIS [None]
  - LIPOMATOSIS [None]
  - MYOCARDIAL ISCHAEMIA [None]
  - PANCREATOLITHIASIS [None]
  - RENAL CYST [None]
  - SUDDEN DEATH [None]
  - THERMAL BURN [None]
